FAERS Safety Report 14198050 (Version 1)
Quarter: 2017Q4

REPORT INFORMATION
  Report Type: Spontaneous
  Country: US (occurrence: None)
  Receive Date: 20171116
  Receipt Date: 20171116
  Transmission Date: 20180321
  Serious: Yes (Other)
  Sender: FDA-Public Use
  Company Number: None

PATIENT
  Age: 30 Year
  Sex: Female
  Weight: 68.04 kg

DRUGS (3)
  1. MULTI-VITAMINS [Concomitant]
  2. MIRENA [Suspect]
     Active Substance: LEVONORGESTREL
     Dates: start: 20160630, end: 20171018
  3. LIDOCAINE. [Concomitant]
     Active Substance: LIDOCAINE

REACTIONS (6)
  - Fungal infection [None]
  - Bacterial infection [None]
  - Oropharyngeal pain [None]
  - Alopecia [None]
  - Complication associated with device [None]
  - Vulvovaginal pain [None]

NARRATIVE: CASE EVENT DATE: 20161101
